FAERS Safety Report 24166776 (Version 1)
Quarter: 2024Q3

REPORT INFORMATION
  Report Type: Spontaneous
  Country: US (occurrence: US)
  Receive Date: 20240802
  Receipt Date: 20240802
  Transmission Date: 20241017
  Serious: No
  Sender: CHEPLAPHARM
  Company Number: US-AstraZeneca-2023A096224

PATIENT

DRUGS (1)
  1. BUDESONIDE [Suspect]
     Active Substance: BUDESONIDE
     Indication: Asthma
     Dosage: TWO TIMES ?DAILY DOSE: 180 MICROGRAM
     Route: 055

REACTIONS (5)
  - Lung neoplasm malignant [Unknown]
  - Visual impairment [Unknown]
  - Dyspnoea [Unknown]
  - Cough [Unknown]
  - Product use issue [Unknown]
